FAERS Safety Report 5150592-2 (Version None)
Quarter: 2006Q4

REPORT INFORMATION
  Report Type: 
  Country: None (occurrence: None)
  Receive Date: 20061114
  Receipt Date: 20060426
  Transmission Date: 20070319
  Serious: Yes (Hospitalization)
  Sender: FDA-Public Use
  Company Number: ZA-BRISTOL-MYERS SQUIBB COMPANY-13357306

PATIENT
  Age: 47 Year
  Sex: Female

DRUGS (4)
  1. LOPINAVIR + RITONAVIR [Suspect]
     Indication: HIV INFECTION
     Route: 048
     Dates: start: 20060412
  2. TENOFOVIR DF + EMTRICITABINE [Suspect]
     Indication: HIV INFECTION
     Route: 048
     Dates: start: 20060412
  3. ZINACEF [Concomitant]
     Dates: start: 20060426, end: 20060505
  4. IMODIUM [Concomitant]
     Dates: start: 20060426, end: 20060505

REACTIONS (3)
  - DEHYDRATION [None]
  - DIARRHOEA [None]
  - WEIGHT DECREASED [None]
